FAERS Safety Report 25956466 (Version 1)
Quarter: 2025Q4

REPORT INFORMATION
  Report Type: Spontaneous
  Country: US (occurrence: US)
  Receive Date: 20251024
  Receipt Date: 20251024
  Transmission Date: 20260119
  Serious: Yes (Hospitalization, Other)
  Sender: DAIICHI
  Company Number: US-DSJP-DS-2025-171444-US

PATIENT
  Age: 78 Year
  Sex: Female
  Weight: 72.57 kg

DRUGS (3)
  1. ENHERTU [Suspect]
     Active Substance: FAM-TRASTUZUMAB DERUXTECAN-NXKI
     Indication: Breast cancer stage IV
     Dosage: UNK
     Route: 065
  2. METOPROLOL TARTRATE [Suspect]
     Active Substance: METOPROLOL TARTRATE
     Indication: Product used for unknown indication
     Dosage: UNK
     Route: 065
  3. IBRANCE [Suspect]
     Active Substance: PALBOCICLIB
     Indication: Product used for unknown indication
     Dosage: UNK, QD
     Route: 065

REACTIONS (7)
  - Illness [Unknown]
  - Atrial fibrillation [Unknown]
  - Cardiac disorder [Unknown]
  - Atrial tachycardia [Unknown]
  - Palpitations [Unknown]
  - Pain [Unknown]
  - Blood potassium decreased [Unknown]
